FAERS Safety Report 4754574-1 (Version None)
Quarter: 2005Q3

REPORT INFORMATION
  Report Type: 
  Country: None (occurrence: None)
  Receive Date: 20050825
  Receipt Date: 20050809
  Transmission Date: 20060218
  Serious: Yes (Death, Hospitalization)
  Sender: FDA-Public Use
  Company Number: DSA_26889_2005

PATIENT
  Sex: Male
  Weight: 1.85 kg

DRUGS (4)
  1. ENALAPRIL [Suspect]
     Dosage: 5 MG QD TRAN-P
     Route: 064
  2. NIFEDIPINE [Concomitant]
  3. METHYLDOPA [Concomitant]
  4. OTHER ANTIHYPERTENSIVES [Concomitant]

REACTIONS (32)
  - ANAEMIA NEONATAL [None]
  - ANURIA [None]
  - ASCITES [None]
  - CARDIOMEGALY [None]
  - DILATATION ATRIAL [None]
  - DILATATION VENTRICULAR [None]
  - DRUG EXPOSURE DURING PREGNANCY [None]
  - FACE OEDEMA [None]
  - FOETAL DISORDER [None]
  - FOETAL GROWTH RETARDATION [None]
  - HYDROPS FOETALIS [None]
  - HYPERGLYCAEMIA [None]
  - HYPERKALAEMIA [None]
  - HYPOALBUMINAEMIA [None]
  - HYPOGLYCAEMIA NEONATAL [None]
  - JAUNDICE CHOLESTATIC [None]
  - NEONATAL DISORDER [None]
  - NEONATAL HYPOTENSION [None]
  - NEONATAL PNEUMONIA [None]
  - NEONATAL RESPIRATORY DEPRESSION [None]
  - OLIGOHYDRAMNIOS [None]
  - PERICARDIAL EFFUSION [None]
  - PERITONEAL DIALYSIS [None]
  - PITTING OEDEMA [None]
  - PLEURAL EFFUSION [None]
  - PULMONARY OEDEMA NEONATAL [None]
  - RENAL FAILURE NEONATAL [None]
  - SMALL FOR DATES BABY [None]
  - STAPHYLOCOCCAL SEPSIS [None]
  - THERAPY NON-RESPONDER [None]
  - THROMBOCYTOPENIA NEONATAL [None]
  - VENTRICULAR TACHYCARDIA [None]
